FAERS Safety Report 5921178-4 (Version None)
Quarter: 2008Q4

REPORT INFORMATION
  Report Type: 
  Country: None (occurrence: None)
  Receive Date: 20081016
  Receipt Date: 20081009
  Transmission Date: 20090506
  Serious: Yes (Other)
  Sender: FDA-Public Use
  Company Number: US-ASTRAZENECA-2008UW22318

PATIENT
  Age: 35 Year
  Sex: Male
  Weight: 83.9 kg

DRUGS (3)
  1. NEXIUM [Suspect]
     Indication: GASTROOESOPHAGEAL REFLUX DISEASE
     Route: 048
  2. NEXIUM [Suspect]
     Route: 048
  3. OTC PAIN MEDICATION (UNSPECIFIED) [Concomitant]
     Indication: PAIN

REACTIONS (5)
  - FALL [None]
  - FOOT FRACTURE [None]
  - HAND FRACTURE [None]
  - STRESS FRACTURE [None]
  - WRIST FRACTURE [None]
